FAERS Safety Report 9208662 (Version 1)
Quarter: 2013Q2

REPORT INFORMATION
  Report Type: Spontaneous
  Country: US (occurrence: None)
  Receive Date: 20130402
  Receipt Date: 20130402
  Transmission Date: 20140414
  Serious: Yes (Other)
  Sender: FDA-Public Use
  Company Number: None

PATIENT
  Age: 83 Year
  Sex: Female

DRUGS (1)
  1. ZELBORAF 240 MG, GENENGTECH [Suspect]
     Dosage: 240 MG 4 BID PO
     Route: 048
     Dates: start: 20130212

REACTIONS (2)
  - Rash [None]
  - Rash [None]
